FAERS Safety Report 8816331 (Version 1)
Quarter: 2012Q4

REPORT INFORMATION
  Report Type: Spontaneous
  Country: US (occurrence: None)
  Receive Date: 20120928
  Receipt Date: 20120928
  Transmission Date: 20130627
  Serious: Yes (Other)
  Sender: FDA-Public Use
  Company Number: None

PATIENT
  Age: 49 Year
  Sex: Female
  Weight: 70.31 kg

DRUGS (2)
  1. ZONISAMIDE [Suspect]
     Indication: SEIZURE
     Route: 048
     Dates: start: 20120920, end: 20120920
  2. ZONISAMIDE [Suspect]
     Indication: ARACHNOID CYST
     Route: 048
     Dates: start: 20120920, end: 20120920

REACTIONS (7)
  - Headache [None]
  - Disturbance in attention [None]
  - Decreased appetite [None]
  - Mental disorder [None]
  - Convulsion [None]
  - Asthenia [None]
  - Fatigue [None]
